FAERS Safety Report 7178787-7 (Version None)
Quarter: 2010Q4

REPORT INFORMATION
  Report Type: 
  Country: None (occurrence: None)
  Receive Date: 20101209
  Receipt Date: 20101118
  Transmission Date: 20110411
  Serious: Yes (Other)
  Sender: FDA-Public Use
  Company Number: 2010-3760

PATIENT
  Age: 43 Year
  Sex: Male
  Weight: 110 kg

DRUGS (2)
  1. LANREOTIDE AUTOGEL (LANREOTIDE) (LANREOTIDE ACETATE) [Suspect]
     Indication: ACROMEGALY
     Dosage: 60MG (60 MG,1 IN 4 WK),SUBCUTANEOUS
     Route: 058
     Dates: start: 20090901
  2. NEBIDO [Concomitant]

REACTIONS (3)
  - DEEP VEIN THROMBOSIS [None]
  - DIARRHOEA [None]
  - INJECTION SITE PAIN [None]
